FAERS Safety Report 10079292 (Version 1)
Quarter: 2014Q2

REPORT INFORMATION
  Report Type: Spontaneous
  Country: US (occurrence: None)
  Receive Date: 20140414
  Receipt Date: 20140414
  Transmission Date: 20141212
  Serious: Yes (Disabling, Other)
  Sender: FDA-Public Use
  Company Number: None

PATIENT
  Age: 54 Year
  Sex: Female
  Weight: 68.04 kg

DRUGS (1)
  1. HYDROCORTISONE [Suspect]
     Indication: ADDISON^S DISEASE
     Dosage: 20 MG 2 PILLS THREE TIMES DAILY TAKEN BY MOUTH
     Route: 048

REACTIONS (10)
  - Myalgia [None]
  - Arthralgia [None]
  - Fatigue [None]
  - Nausea [None]
  - Diarrhoea [None]
  - Vomiting [None]
  - Anxiety [None]
  - Weight increased [None]
  - Drug ineffective [None]
  - Product substitution issue [None]
